FAERS Safety Report 19477132 (Version 1)
Quarter: 2021Q2

REPORT INFORMATION
  Report Type: Spontaneous
  Country: US (occurrence: US)
  Receive Date: 20210629
  Receipt Date: 20210629
  Transmission Date: 20210717
  Serious: Yes (Hospitalization)
  Sender: FDA-Public Use
  Company Number: None

PATIENT
  Age: 74 Year
  Sex: Male

DRUGS (3)
  1. VITAMIN B12 [Concomitant]
     Active Substance: CYANOCOBALAMIN
  2. DROXIDOPA 300MG CAP [Suspect]
     Active Substance: DROXIDOPA
     Indication: DIZZINESS
     Route: 048
     Dates: start: 20210210
  3. VITAMIN D [Concomitant]
     Active Substance: VITAMIN D NOS

REACTIONS (1)
  - Surgery [None]

NARRATIVE: CASE EVENT DATE: 20210503
